FAERS Safety Report 4718807-X (Version None)
Quarter: 2005Q3

REPORT INFORMATION
  Report Type: 
  Country: None (occurrence: None)
  Receive Date: 20050719
  Receipt Date: 20050705
  Transmission Date: 20060218
  Serious: Yes (Hospitalization, Disabling, Other)
  Sender: FDA-Public Use
  Company Number: 2005098075

PATIENT
  Age: 42 Year
  Sex: Female
  Weight: 88.4514 kg

DRUGS (4)
  1. NEURONTIN [Suspect]
     Indication: RADICULOPATHY
     Dosage: ORAL
     Route: 048
     Dates: start: 19970101
  2. MORPHINE [Suspect]
     Indication: PAIN
     Dates: start: 19970101
  3. DESYREL [Concomitant]
  4. ZOLOFT [Concomitant]

REACTIONS (13)
  - AMNESIA [None]
  - DRUG INTERACTION [None]
  - DRUG SCREEN FALSE POSITIVE [None]
  - DYSKINESIA [None]
  - DYSPNOEA [None]
  - DYSSTASIA [None]
  - FATIGUE [None]
  - INFLUENZA [None]
  - LOSS OF CONSCIOUSNESS [None]
  - MOTOR DYSFUNCTION [None]
  - NASOPHARYNGITIS [None]
  - SCIATICA [None]
  - SOMNOLENCE [None]
